FAERS Safety Report 10277151 (Version 5)
Quarter: 2014Q3

REPORT INFORMATION
  Report Type: Spontaneous
  Country: JP (occurrence: JP)
  Receive Date: 20140703
  Receipt Date: 20140926
  Transmission Date: 20150326
  Serious: Yes (Hospitalization, Other)
  Sender: FDA-Public Use
  Company Number: JP-PFIZER INC-2014178174

PATIENT
  Age: 67 Year
  Sex: Male
  Weight: 72 kg

DRUGS (20)
  1. LYRICA [Suspect]
     Active Substance: PREGABALIN
     Indication: LUMBAR SPINAL STENOSIS
     Dosage: 75 MG, 1X/DAY
     Route: 048
     Dates: start: 20131017
  2. LYRICA [Suspect]
     Active Substance: PREGABALIN
     Dosage: 150 MG, 1X/DAY
     Route: 048
     Dates: start: 20140109, end: 20140605
  3. JANUVIA [Concomitant]
     Active Substance: SITAGLIPTIN PHOSPHATE
  4. BAYASPIRIN [Concomitant]
     Active Substance: ASPIRIN
     Indication: CORONARY ARTERIAL STENT INSERTION
     Dosage: 100 MG, 2X/DAY
     Route: 048
     Dates: start: 20110119
  5. MAG-LAX [Concomitant]
     Active Substance: MAGNESIUM HYDROXIDE\PARAFFIN
     Indication: CONSTIPATION
     Dosage: 330 MG, 3X/DAY
     Route: 048
     Dates: start: 20110818
  6. BLOPRESS [Concomitant]
     Active Substance: CANDESARTAN CILEXETIL
     Indication: HYPERTENSION
     Dosage: 8 MG, 1X/DAY
     Route: 048
     Dates: start: 20121101
  7. LOXOPROFEN [Concomitant]
     Active Substance: LOXOPROFEN
     Indication: LUMBAR SPINAL STENOSIS
     Dosage: 60 MG, 3X/DAY
     Route: 048
     Dates: start: 20110112
  8. LIPITOR [Concomitant]
     Active Substance: ATORVASTATIN CALCIUM
     Indication: HYPERLIPIDAEMIA
     Dosage: 5 MG, 1X/DAY
     Route: 048
     Dates: start: 20110210
  9. TRAMCET [Concomitant]
     Active Substance: ACETAMINOPHEN\TRAMADOL
     Indication: LUMBAR SPINAL STENOSIS
     Dosage: 1 DF, 2X/DAY
     Route: 048
     Dates: start: 20110908
  10. BAYASPIRIN [Concomitant]
     Active Substance: ASPIRIN
     Indication: ENDARTERECTOMY
  11. PLAVIX [Concomitant]
     Active Substance: CLOPIDOGREL BISULFATE
     Indication: ENDARTERECTOMY
     Dosage: 75 MG, 1X/DAY
     Route: 048
     Dates: start: 20110112
  12. AMARYL [Concomitant]
     Active Substance: GLIMEPIRIDE
  13. SEIBULE [Concomitant]
     Active Substance: MIGLITOL
  14. BEHYD [Concomitant]
     Indication: HYPERTENSION
     Dosage: 4 MG, 2X/DAY
     Route: 048
     Dates: start: 20110112
  15. MYONAL [Concomitant]
     Active Substance: EPERISONE HYDROCHLORIDE
     Indication: LUMBAR SPINAL STENOSIS
     Dosage: 50 MG, 3X/DAY
     Route: 048
     Dates: start: 20110112
  16. PLAVIX [Concomitant]
     Active Substance: CLOPIDOGREL BISULFATE
     Indication: CORONARY ARTERIAL STENT INSERTION
  17. ADALAT [Concomitant]
     Active Substance: NIFEDIPINE
     Indication: HYPERTENSION
     Dosage: 20 MG, 2X/DAY
     Route: 048
     Dates: start: 20110721
  18. ARTIST [Concomitant]
     Active Substance: CARVEDILOL
     Indication: HYPERTENSION
     Dosage: 5 MG, 1X/DAY
     Route: 048
     Dates: start: 20110119
  19. BEHYD [Concomitant]
     Indication: OEDEMA
  20. OPALMON [Concomitant]
     Active Substance: LIMAPROST
     Indication: LUMBAR SPINAL STENOSIS
     Dosage: 5 UG, 3X/DAY
     Route: 048
     Dates: start: 20110112

REACTIONS (4)
  - Weight increased [Recovered/Resolved]
  - Face oedema [Recovered/Resolved]
  - Palpitations [Recovered/Resolved]
  - Dyspnoea [Recovered/Resolved]

NARRATIVE: CASE EVENT DATE: 20140407
